FAERS Safety Report 17577798 (Version 1)
Quarter: 2020Q1

REPORT INFORMATION
  Report Type: Spontaneous
  Country: DE (occurrence: DE)
  Receive Date: 20200324
  Receipt Date: 20200324
  Transmission Date: 20200409
  Serious: Yes (Congenital Anomaly, Other)
  Sender: FDA-Public Use
  Company Number: DE-MYLANLABS-2020M1029753

PATIENT
  Age: 1 Day
  Sex: Male
  Weight: 3.03 kg

DRUGS (4)
  1. PAROXETIN                          /00830801/ [Concomitant]
     Active Substance: PAROXETINE HYDROCHLORIDE
     Indication: ANXIETY DISORDER
     Dosage: 20 [MG/D (BIS 10 MG/D) ]
     Route: 064
     Dates: start: 20180905, end: 20181007
  2. CITALOPRAM [Suspect]
     Active Substance: CITALOPRAM HYDROBROMIDE
     Indication: DEPRESSION
     Dosage: 20 [MG/D ]
     Route: 064
     Dates: start: 20181008, end: 20190603
  3. FOLIC ACID. [Concomitant]
     Active Substance: FOLIC ACID
     Indication: PROPHYLAXIS OF NEURAL TUBE DEFECT
     Dosage: UNK
     Route: 064
  4. DOXEPIN [Concomitant]
     Active Substance: DOXEPIN
     Indication: DEPRESSION
     Dosage: UNK
     Route: 064
     Dates: start: 20181007, end: 20181007

REACTIONS (3)
  - Foetal exposure during pregnancy [Recovered/Resolved]
  - Congenital hydronephrosis [Unknown]
  - Congenital ureteropelvic junction obstruction [Unknown]

NARRATIVE: CASE EVENT DATE: 20190603
